FAERS Safety Report 21238689 (Version 1)
Quarter: 2022Q3

REPORT INFORMATION
  Report Type: Spontaneous
  Country: US (occurrence: None)
  Receive Date: 20220819
  Receipt Date: 20220819
  Transmission Date: 20221027
  Serious: No
  Sender: FDA-Public Use
  Company Number: None

PATIENT
  Age: 40 Year
  Sex: Female
  Weight: 51.75 kg

DRUGS (12)
  1. ENBREL [Suspect]
     Active Substance: ETANERCEPT
     Indication: Rheumatoid arthritis
     Dosage: OTHER QUANTITY : 1 INJECTION(S);?OTHER FREQUENCY : ONCE A WEEK.;?
     Route: 058
  2. NOVOLOG [Concomitant]
     Active Substance: INSULIN ASPART
  3. LANTUS [Concomitant]
     Active Substance: INSULIN GLARGINE
  4. dexcome g6 [Concomitant]
  5. VYVANSE [Concomitant]
     Active Substance: LISDEXAMFETAMINE DIMESYLATE
  6. TRAMADOL [Concomitant]
     Active Substance: TRAMADOL
  7. CYCLOBENZAPRINE [Concomitant]
     Active Substance: CYCLOBENZAPRINE
  8. ibprofen [Concomitant]
  9. BIOTIN [Concomitant]
     Active Substance: BIOTIN
  10. VITAMIN D NOS [Concomitant]
     Active Substance: VITAMIN D NOS
  11. VITAMIN C [Concomitant]
     Active Substance: ASCORBIC ACID
  12. PROBIOTICS NOS [Concomitant]
     Active Substance: PROBIOTICS NOS

REACTIONS (2)
  - Burning sensation [None]
  - Injection site pain [None]

NARRATIVE: CASE EVENT DATE: 20220804
